FAERS Safety Report 10524409 (Version 1)
Quarter: 2014Q4

REPORT INFORMATION
  Report Type: Spontaneous
  Country: US (occurrence: None)
  Receive Date: 20141015
  Receipt Date: 20141015
  Transmission Date: 20150528
  Serious: No
  Sender: FDA-Public Use
  Company Number: None

PATIENT

DRUGS (2)
  1. H-CHLOR [Suspect]
     Active Substance: SODIUM HYPOCHLORITE
     Route: 061
  2. HYSEPT [Suspect]
     Active Substance: SODIUM HYPOCHLORITE
     Route: 061

REACTIONS (2)
  - Circumstance or information capable of leading to medication error [None]
  - Product packaging confusion [None]
